FAERS Safety Report 16486717 (Version 1)
Quarter: 2019Q2

REPORT INFORMATION
  Report Type: Spontaneous
  Country: US (occurrence: US)
  Receive Date: 20190627
  Receipt Date: 20190627
  Transmission Date: 20190711
  Serious: No
  Sender: FDA-Public Use
  Company Number: US-GALDERMA-US19020415

PATIENT
  Sex: Female

DRUGS (6)
  1. PROACTIV MD ADAPALENE ACNE TREATMENT [Suspect]
     Active Substance: ADAPALENE
     Indication: PRODUCT USED FOR UNKNOWN INDICATION
     Dosage: 0.1%
     Route: 061
     Dates: start: 20190227
  2. PROACTIV MARK CORRECTING PADS [Concomitant]
     Active Substance: GLYCOLIC ACID\SALICYLIC ACID
     Route: 061
     Dates: start: 20190227
  3. MULTIVITAMIN [Concomitant]
     Active Substance: VITAMINS
     Route: 061
     Dates: start: 20190227
  4. PROACTIV SKIN PURIFYING MASK [Concomitant]
     Active Substance: SULFUR
     Route: 061
     Dates: start: 20190227
  5. IRON [Concomitant]
     Active Substance: IRON
  6. PROACTIV ADVANCED DARK SPOT CORRECTING SERUM [Concomitant]
     Active Substance: HYDROQUINONE
     Route: 061
     Dates: start: 20190227

REACTIONS (2)
  - Erythema [Recovering/Resolving]
  - Skin exfoliation [Recovering/Resolving]

NARRATIVE: CASE EVENT DATE: 20190327
